FAERS Safety Report 14805129 (Version 2)
Quarter: 2018Q2

REPORT INFORMATION
  Report Type: Spontaneous
  Country: PT (occurrence: PT)
  Receive Date: 20180425
  Receipt Date: 20180430
  Transmission Date: 20180711
  Serious: Yes (Other)
  Sender: FDA-Public Use
  Company Number: PT-PFIZER INC-2018166204

PATIENT
  Age: 7 Year
  Sex: Female

DRUGS (6)
  1. PROPRANOLOL HYDROCHLORIDE. [Suspect]
     Active Substance: PROPRANOLOL HYDROCHLORIDE
     Indication: VENTRICULAR EXTRASYSTOLES
  2. FLECAINIDE [Suspect]
     Active Substance: FLECAINIDE
     Indication: LONG QT SYNDROME CONGENITAL
     Dosage: UNK
     Route: 065
  3. PROPRANOLOL HYDROCHLORIDE. [Suspect]
     Active Substance: PROPRANOLOL HYDROCHLORIDE
     Indication: LONG QT SYNDROME CONGENITAL
     Dosage: UNK
     Route: 048
  4. PROPRANOLOL HYDROCHLORIDE. [Suspect]
     Active Substance: PROPRANOLOL HYDROCHLORIDE
     Indication: VENTRICULAR TACHYCARDIA
  5. QUINIDINE [Suspect]
     Active Substance: QUINIDINE
     Indication: LONG QT SYNDROME CONGENITAL
     Dosage: UNK
     Route: 065
  6. AMIODARONE HCL [Suspect]
     Active Substance: AMIODARONE HYDROCHLORIDE
     Indication: LONG QT SYNDROME CONGENITAL
     Dosage: UNK
     Route: 065

REACTIONS (4)
  - Fatigue [Unknown]
  - Congestive cardiomyopathy [Unknown]
  - Drug ineffective [Unknown]
  - Cardiac failure chronic [Unknown]
